FAERS Safety Report 8823370 (Version 3)
Quarter: 2014Q2

REPORT INFORMATION
  Report Type: Report from Study
  Country: US (occurrence: US)
  Receive Date: 20121003
  Receipt Date: 20140221
  Transmission Date: 20141212
  Serious: Yes (Other)
  Sender: FDA-Public Use
  Company Number: US-ALEXION PHARMACEUTICALS INC.-A201201854

PATIENT
  Sex: Male
  Weight: 57.14 kg

DRUGS (10)
  1. SOLIRIS [Suspect]
     Indication: PAROXYSMAL NOCTURNAL HAEMOGLOBINURIA
     Dosage: 900 MG, Q2W
     Route: 042
     Dates: start: 20100402
  2. MORPHINE [Concomitant]
     Indication: ABDOMINAL PAIN
     Dosage: 20-40 MG, Q2H
  3. LORAZEPAM [Concomitant]
     Dosage: 1-2 MG Q4-6H
  4. CASODEX 50 [Concomitant]
     Indication: PROSTATE CANCER
     Dosage: UNK
  5. PAXIL [Concomitant]
     Dosage: UNK
  6. PREVACID [Concomitant]
     Dosage: UNK
  7. RESTORIL [Concomitant]
     Dosage: UNK
  8. FOLIC ACID [Concomitant]
     Dosage: UNK
  9. PREDNISONE [Concomitant]
     Dosage: UNK
  10. VITAMINS NOS [Concomitant]
     Dosage: UNK

REACTIONS (6)
  - Gastric cancer [Not Recovered/Not Resolved]
  - Colon cancer [Unknown]
  - Abdominal pain upper [Not Recovered/Not Resolved]
  - Diarrhoea [Not Recovered/Not Resolved]
  - Abdominal pain [Unknown]
  - Nausea [Unknown]
